FAERS Safety Report 8290597-6 (Version None)
Quarter: 2012Q2

REPORT INFORMATION
  Report Type: 
  Country: None (occurrence: None)
  Receive Date: 20120417
  Receipt Date: 20110907
  Transmission Date: 20120825
  Serious: No
  Sender: FDA-Public Use
  Company Number: US-ASTRAZENECA-2011SE30222

PATIENT
  Age: 46 Year
  Sex: Female

DRUGS (3)
  1. PRILOSEC [Suspect]
     Route: 048
  2. PRILOSEC OTC [Suspect]
     Route: 048
  3. NEXIUM [Suspect]
     Route: 048

REACTIONS (12)
  - ROAD TRAFFIC ACCIDENT [None]
  - GASTROOESOPHAGEAL REFLUX DISEASE [None]
  - CHOKING [None]
  - APHAGIA [None]
  - MALAISE [None]
  - DRUG DOSE OMISSION [None]
  - SLEEP DISORDER DUE TO GENERAL MEDICAL CONDITION, INSOMNIA TYPE [None]
  - THROAT IRRITATION [None]
  - OESOPHAGEAL PAIN [None]
  - ASPIRATION [None]
  - ABDOMINAL DISTENSION [None]
  - DRUG INEFFECTIVE [None]
